FAERS Safety Report 16840430 (Version 16)
Quarter: 2025Q4

REPORT INFORMATION
  Report Type: Report from Study
  Country: US (occurrence: US)
  Receive Date: 20190923
  Receipt Date: 20251223
  Transmission Date: 20260118
  Serious: Yes (Hospitalization, Other)
  Sender: PFIZER
  Company Number: US-PFIZER INC-2019239360

PATIENT
  Age: 72 Year
  Sex: Female

DRUGS (4)
  1. LORBRENA [Suspect]
     Active Substance: LORLATINIB
     Indication: Lung neoplasm malignant
     Dosage: 100 MG
  2. LORBRENA [Suspect]
     Active Substance: LORLATINIB
     Dosage: 25 MG
  3. LORBRENA [Suspect]
     Active Substance: LORLATINIB
     Dosage: TAKE 3 TABLETS (75MG TOTAL) BY MOUTH DAILY
     Route: 048
     Dates: start: 20240206
  4. CELECOXIB [Concomitant]
     Active Substance: CELECOXIB
     Indication: Pain
     Dosage: TAKE 1 CAPSULE BY MOUTH TWICE DAILY AS NEEDED FOR PAIN
     Route: 048
     Dates: start: 20240321

REACTIONS (6)
  - COVID-19 [Unknown]
  - Brain oedema [Unknown]
  - Confusional state [Unknown]
  - Headache [Unknown]
  - Nasopharyngitis [Unknown]
  - Off label use [Unknown]
